FAERS Safety Report 7142344-9 (Version None)
Quarter: 2010Q4

REPORT INFORMATION
  Report Type: 
  Country: None (occurrence: None)
  Receive Date: 20101207
  Receipt Date: 20101129
  Transmission Date: 20110411
  Serious: Yes (Hospitalization, Other)
  Sender: FDA-Public Use
  Company Number: US-ELI_LILLY_AND_COMPANY-US200909003752

PATIENT
  Sex: Female

DRUGS (21)
  1. FORTEO [Suspect]
     Indication: OSTEOPOROSIS
     Dosage: 20 UG, DAILY (1/D)
     Route: 065
     Dates: start: 20090914
  2. FORTEO [Suspect]
     Dosage: 20 UG, DAILY (1/D)
     Route: 065
  3. FORTEO [Suspect]
     Dosage: 20 UG, DAILY (1/D)
     Route: 065
  4. FORTEO [Suspect]
     Dosage: UNK, DAILY (1/D)
     Route: 065
  5. FORTEO [Suspect]
     Dosage: 20 UG, DAILY (1/D)
  6. COREG [Concomitant]
     Dosage: 20 MG, DAILY (1/D)
  7. LEXAPRO [Concomitant]
     Dosage: 10 MG, DAILY (1/D)
  8. LUNESTA [Concomitant]
     Dosage: 3 MG, DAILY (1/D)
  9. OXYBUTYNIN [Concomitant]
     Dosage: 30 MG, DAILY (1/D)
  10. CALCIUM [Concomitant]
     Dosage: 3 D/F, UNK
  11. FISH OIL [Concomitant]
     Dosage: 3000 MG, UNK
  12. SIMVASTATIN [Concomitant]
     Dosage: 20 MG, DAILY (1/D)
  13. PROAIR HFA [Concomitant]
     Indication: ASTHMA
     Dosage: 2 D/F, DAILY (1/D)
  14. ADVAIR [Concomitant]
     Dosage: 2 D/F, DAILY (1/D)
  15. SPIRIVA [Concomitant]
     Dosage: 1 D/F, DAILY (1/D)
  16. SINGULAIR [Concomitant]
     Dosage: 10 MG, DAILY (1/D)
  17. PROVAIR [Concomitant]
  18. OMEPRAZOLE [Concomitant]
  19. STOOL SOFTENER [Concomitant]
  20. CIPROFLOXACIN [Concomitant]
  21. BENADRYL [Concomitant]

REACTIONS (14)
  - ARTHRALGIA [None]
  - ASTHENIA [None]
  - CHILLS [None]
  - EAR DISCOMFORT [None]
  - FALL [None]
  - FATIGUE [None]
  - FEELING ABNORMAL [None]
  - HEADACHE [None]
  - HIP ARTHROPLASTY [None]
  - MALAISE [None]
  - NAUSEA [None]
  - PAIN [None]
  - PAIN IN EXTREMITY [None]
  - PYREXIA [None]
